FAERS Safety Report 7494651-8 (Version None)
Quarter: 2011Q2

REPORT INFORMATION
  Report Type: 
  Country: None (occurrence: None)
  Receive Date: 20110520
  Receipt Date: 20090930
  Transmission Date: 20111010
  Serious: Yes (Other)
  Sender: FDA-Public Use
  Company Number: US-BAYER-200934798NA

PATIENT
  Age: 48 Year
  Sex: Female
  Weight: 113.38 kg

DRUGS (26)
  1. RAMIPRIL [Concomitant]
     Dosage: 5 MG, QD
     Route: 048
  2. ISODRIL [Concomitant]
     Dosage: 10 MG, TID
     Route: 048
  3. HYDROCHLOROTHIAZIDE [Concomitant]
     Dosage: 25 MG, QD
     Route: 048
  4. PHENYLEPHRIN [Concomitant]
     Dosage: 25 CC/HR
     Route: 042
     Dates: start: 19990624
  5. VERSED [Concomitant]
     Dosage: 20 MG, UNK
     Route: 042
     Dates: start: 19990624
  6. MELPHALAN HYDROCHLORIDE [Concomitant]
     Dosage: 5 MG, QD
     Route: 048
  7. FORANE [Concomitant]
     Dosage: INHALED
     Dates: start: 19990624
  8. FENTANYL [Concomitant]
     Dosage: UNK
     Route: 042
     Dates: start: 19990624
  9. PROTAMINE SULFATE [Concomitant]
     Dosage: UNK
     Route: 042
     Dates: start: 19990624
  10. PROPOFOL [Concomitant]
     Dosage: 35 MCG/KG/HR
     Route: 042
     Dates: start: 19990624
  11. INSULIN [INSULIN] [Concomitant]
     Dosage: UNK
     Route: 042
     Dates: start: 19990624
  12. TIAZAC [Concomitant]
     Dosage: 360MG
     Route: 048
     Dates: start: 19980101
  13. PRILOSEC [Concomitant]
     Dosage: 20 MG, QD
     Route: 048
  14. SOLU-MEDROL [Concomitant]
     Dosage: 1 G, UNK
     Route: 042
     Dates: start: 19990624
  15. HEPARIN [Concomitant]
     Dosage: UNK
     Route: 042
     Dates: start: 19990624
  16. DILTIAZEM [Concomitant]
     Dosage: 180 MG, QD
     Route: 048
  17. ATENOLOL [Concomitant]
     Dosage: 50 MG, QD
     Route: 048
  18. COLCHICINE [Concomitant]
     Dosage: 0.6 MG, QD
     Route: 048
  19. DOBUTAMINE HYDROCHLORIDE [Concomitant]
     Dosage: 5 MCG/KG/MIN
     Route: 042
     Dates: start: 19990624
  20. ACETAMINOPHEN [Concomitant]
  21. TRASYLOL [Suspect]
     Indication: CORONARY ARTERY BYPASS
     Dosage: 1 ML, TEST DOSE
     Route: 042
     Dates: start: 19990624
  22. TRASYLOL [Suspect]
     Dosage: 25 ML, Q1HR
     Route: 042
  23. ALLOPURINOL [Concomitant]
  24. NIPRIDE [Concomitant]
  25. TRASYLOL [Suspect]
     Dosage: 100 ML, UNK
     Route: 042
  26. CEFUROXIME [Concomitant]
     Dosage: 1 G, UNK
     Route: 042
     Dates: start: 19990624

REACTIONS (12)
  - MULTI-ORGAN FAILURE [None]
  - FEAR [None]
  - ANHEDONIA [None]
  - FEAR OF DEATH [None]
  - RENAL FAILURE [None]
  - RENAL INJURY [None]
  - INJURY [None]
  - ANXIETY [None]
  - DEPRESSION [None]
  - EMOTIONAL DISTRESS [None]
  - PAIN [None]
  - NERVOUSNESS [None]
